FAERS Safety Report 8113965-1 (Version None)
Quarter: 2012Q1

REPORT INFORMATION
  Report Type: 
  Country: None (occurrence: None)
  Receive Date: 20120203
  Receipt Date: 20120130
  Transmission Date: 20120608
  Serious: Yes (Other)
  Sender: FDA-Public Use
  Company Number: IT-GILEAD-2011-0048159

PATIENT
  Age: 67 Year
  Sex: Male

DRUGS (19)
  1. RANOLAZINE [Suspect]
     Indication: PRODUCT USED FOR UNKNOWN INDICATION
     Dosage: 375 MG, BID
     Route: 048
     Dates: start: 20110912
  2. NITROGLYCERIN [Concomitant]
     Indication: ANGINA PECTORIS
     Route: 060
  3. CETIRIZINE [Concomitant]
     Indication: URTICARIA
     Dosage: 10 MG, QD
     Route: 048
  4. TOPIRAMATE [Concomitant]
     Dosage: 50 MG, QD
     Route: 048
  5. TAMSULOSIN HCL [Concomitant]
     Dosage: 400 ?G, QD
     Route: 048
  6. ATENOLOL [Concomitant]
     Dosage: 50 MG, QD
     Route: 048
  7. ATORVASTATIN [Concomitant]
     Dosage: 40 MG, QD
     Route: 048
  8. TEGRETOL [Concomitant]
     Indication: FACIAL PAIN
     Dosage: 200 MG, QD
     Route: 048
  9. ASPIRIN [Concomitant]
     Dosage: 75 MG, QD
     Route: 048
  10. NICORANDIL [Concomitant]
     Dosage: 20 MG, QD
     Route: 048
  11. AMITRIPTYLINE HCL [Concomitant]
     Dosage: 50 MG, QD
     Route: 048
  12. ACETAMINOPHEN AND CODEINE PHOSPHATE [Concomitant]
     Indication: ANALGESIC THERAPY
     Dosage: 15+500 TO 30 TO 100
     Route: 048
  13. CLOPIDOGREL [Concomitant]
     Dosage: 75 MG, QD
     Route: 048
  14. TRAMADOL HCL [Concomitant]
     Dosage: UNK UNK, QD
     Route: 048
  15. LACTULOSE [Concomitant]
     Indication: CONSTIPATION
     Dosage: 30 ML, QD
     Route: 048
  16. ISOSORBIDE MONONITRATE [Concomitant]
     Dosage: 40 MG, QD
     Route: 048
  17. AMLODIPINE [Concomitant]
     Dosage: 5 MG, QD
     Route: 048
  18. GABAPENTIN [Concomitant]
     Dosage: 300 MG, QD
     Route: 048
  19. BALNEUM PLUS                       /01325401/ [Concomitant]

REACTIONS (5)
  - MUSCULOSKELETAL STIFFNESS [None]
  - LOSS OF CONSCIOUSNESS [None]
  - SENSATION OF PRESSURE [None]
  - FALL [None]
  - HYPOAESTHESIA [None]
